FAERS Safety Report 7067685-5 (Version None)
Quarter: 2010Q4

REPORT INFORMATION
  Report Type: 
  Country: None (occurrence: None)
  Receive Date: 20101028
  Receipt Date: 20101013
  Transmission Date: 20110411
  Serious: Yes (Hospitalization, Other)
  Sender: FDA-Public Use
  Company Number: PHHY2010BE67370

PATIENT
  Age: 87 Year
  Sex: Female

DRUGS (12)
  1. ACLASTA [Suspect]
     Indication: OSTEOPOROSIS
     Dosage: 5 MG
     Route: 042
     Dates: start: 20090501
  2. ACLASTA [Suspect]
     Dosage: 5 MG
     Route: 042
     Dates: start: 20100701
  3. PANTOMED [Concomitant]
  4. ASAFLOW [Concomitant]
  5. LESCOL [Concomitant]
  6. ALLOPURINOL [Concomitant]
  7. VALTRAN [Concomitant]
  8. DAFALGAN [Concomitant]
  9. CALCIUM CARBONATE [Concomitant]
  10. LASIX [Concomitant]
  11. BIOFER [Concomitant]
  12. DIURETICS [Concomitant]

REACTIONS (7)
  - CARDIAC FAILURE [None]
  - CAROTID ARTERY BYPASS [None]
  - INFLUENZA LIKE ILLNESS [None]
  - PAIN IN EXTREMITY [None]
  - PLEURAL EFFUSION [None]
  - RADICULAR SYNDROME [None]
  - VERTEBRAL FORAMINAL STENOSIS [None]
